FAERS Safety Report 9263921 (Version 2)
Quarter: 2013Q2

REPORT INFORMATION
  Report Type: Spontaneous
  Country: IT (occurrence: IT)
  Receive Date: 20130430
  Receipt Date: 20130430
  Transmission Date: 20140414
  Serious: Yes (Life-Threatening, Hospitalization, Other)
  Sender: FDA-Public Use
  Company Number: IT-TEVA-397283ISR

PATIENT
  Age: 70 Year
  Sex: Male
  Weight: 90 kg

DRUGS (6)
  1. AZILECT [Suspect]
     Indication: PARKINSON^S DISEASE
     Dosage: 1 MILLIGRAM DAILY;
     Route: 048
     Dates: start: 20130115
  2. DULOXETINA [Interacting]
     Indication: DEPRESSION
     Dosage: 60 MILLIGRAM DAILY; INCREASED FROM 30 MG TO 60 MG
     Route: 048
     Dates: start: 20130322, end: 20130323
  3. DULOXETINA [Interacting]
     Dosage: 30 MILLIGRAM DAILY; INCREASED FROM 30 MG TO 60 MG
     Route: 048
     Dates: start: 20130314, end: 20130321
  4. MADOPAR [Concomitant]
     Dosage: LEVODOPA 200MG/BENSERAZIDE 50MG
     Route: 048
     Dates: start: 2003
  5. ENTACAPONE [Concomitant]
     Route: 048
     Dates: start: 2011
  6. SIRIO [Concomitant]
     Dosage: CARBIDOPA 50MG/LEVODOPA 100MG
     Route: 048

REACTIONS (5)
  - Serotonin syndrome [Recovered/Resolved]
  - Hyperpyrexia [Recovered/Resolved]
  - Drug interaction [Unknown]
  - Confusional state [Recovered/Resolved]
  - Psychomotor hyperactivity [Recovered/Resolved]
